FAERS Safety Report 21611060 (Version 4)
Quarter: 2024Q4

REPORT INFORMATION
  Report Type: Report from Study
  Country: JP (occurrence: JP)
  Receive Date: 20221117
  Receipt Date: 20241213
  Transmission Date: 20250115
  Serious: Yes (Death, Hospitalization, Other)
  Sender: BRISTOL-MYERS SQUIBB COMPANY
  Company Number: JP-BRISTOL-MYERS SQUIBB COMPANY-2022-046112

PATIENT
  Age: 53 Year
  Sex: Female
  Weight: 39 kg

DRUGS (3)
  1. BREYANZI [Suspect]
     Active Substance: LISOCABTAGENE MARALEUCEL
     Indication: High grade B-cell lymphoma recurrent
     Dosage: DONOR AUTOLOGOUS, INTRAVENOUS IV, THE FULL DOSE WAS NOT INFUSED, THE EXCESS WAS DISCARDED, TOTAL NUM
     Route: 041
     Dates: start: 20220411, end: 20220411
  2. CYCLOPHOSPHAMIDE [Concomitant]
     Active Substance: CYCLOPHOSPHAMIDE
     Indication: High grade B-cell lymphoma recurrent
     Dosage: 900MG/?2
     Dates: start: 20220406, end: 20220408
  3. FLUDARABINE [Concomitant]
     Active Substance: FLUDARABINE PHOSPHATE
     Indication: High grade B-cell lymphoma recurrent
     Dosage: 72MG/?2
     Dates: start: 20220406, end: 20220408

REACTIONS (14)
  - Cytokine release syndrome [Recovered/Resolved]
  - Muscle twitching [Recovered/Resolved]
  - Erythropenia [Not Recovered/Not Resolved]
  - Pneumonia [Recovered/Resolved]
  - Thrombocytopenia [Not Recovered/Not Resolved]
  - Leukopenia [Recovered/Resolved]
  - Organising pneumonia [Not Recovered/Not Resolved]
  - Immune effector cell-associated neurotoxicity syndrome [Recovered/Resolved]
  - Graft versus host disease in gastrointestinal tract [Recovering/Resolving]
  - Haemoglobin decreased [Unknown]
  - Enterococcal infection [Fatal]
  - Lymphocyte count decreased [Unknown]
  - BK virus infection [Fatal]
  - Respiratory failure [Fatal]

NARRATIVE: CASE EVENT DATE: 20220411
